FAERS Safety Report 8443648-X (Version None)
Quarter: 2012Q2

REPORT INFORMATION
  Report Type: 
  Country: None (occurrence: None)
  Receive Date: 20120618
  Receipt Date: 20120608
  Transmission Date: 20120825
  Serious: Yes (Other)
  Sender: FDA-Public Use
  Company Number: CO-JNJFOC-20120409927

PATIENT
  Age: 41 Year
  Sex: Female

DRUGS (1)
  1. REMICADE [Suspect]
     Indication: RHEUMATOID ARTHRITIS
     Route: 042
     Dates: start: 20110407, end: 20120401

REACTIONS (10)
  - CYANOSIS [None]
  - HEADACHE [None]
  - NAUSEA [None]
  - VOMITING [None]
  - CHEST PAIN [None]
  - RESPIRATORY DISTRESS [None]
  - FLUSHING [None]
  - ERYTHEMA [None]
  - ANAPHYLACTOID REACTION [None]
  - INFUSION RELATED REACTION [None]
